FAERS Safety Report 17195574 (Version 1)
Quarter: 2019Q4

REPORT INFORMATION
  Report Type: Spontaneous
  Country: US (occurrence: US)
  Receive Date: 20191202
  Receipt Date: 20191202
  Transmission Date: 20200122
  Serious: Yes (Other)
  Sender: FDA-Public Use
  Company Number: None

PATIENT
  Age: 80 Year
  Sex: Female
  Weight: 64.41 kg

DRUGS (8)
  1. MULTIVITAMIN [Concomitant]
     Active Substance: VITAMINS
  2. VITAMIN D3 [Concomitant]
     Active Substance: CHOLECALCIFEROL
  3. B-COMPLEX/C [Concomitant]
  4. FOSAMAX [Suspect]
     Active Substance: ALENDRONATE SODIUM
  5. METOPROLOL ER SUCCINOTE [Concomitant]
     Active Substance: METOPROLOL SUCCINATE
  6. LISINOPROL HCTZ [Concomitant]
  7. IBANDRONATE SODIUM TABLET 150MG [Suspect]
     Active Substance: IBANDRONATE SODIUM
     Indication: ARTHRITIS
     Dosage: ?          QUANTITY:1 PILL;?
     Route: 048
     Dates: start: 20190303, end: 20191101
  8. SIMVASTATIN. [Concomitant]
     Active Substance: SIMVASTATIN

REACTIONS (2)
  - Back pain [None]
  - Pain in extremity [None]

NARRATIVE: CASE EVENT DATE: 20190801
